FAERS Safety Report 9519635 (Version 2)
Quarter: 2014Q1

REPORT INFORMATION
  Report Type: Spontaneous
  Country: US (occurrence: None)
  Receive Date: 20130305
  Receipt Date: 20140306
  Transmission Date: 20141002
  Serious: Yes (Other)
  Sender: FDA-Public Use
  Company Number: 163-21880-12081058

PATIENT
  Age: 47 Year
  Sex: Female

DRUGS (5)
  1. REVLIMID [Suspect]
     Indication: PLASMA CELL MYELOMA
     Dosage: 25 MG, 21 IN 21 D, PO
     Route: 048
     Dates: start: 20120510
  2. BIAXIN (CLARITHROMYCIN) (UNKNOWN) [Concomitant]
  3. OXYCODONE (OXYCODONE) (UNKNOWN) (OXYCODONE) [Concomitant]
  4. NEUPOGEN (FILGRASTIM) (UNKNOWN) [Concomitant]
  5. MULTIVITAMIN (MULTIVITAMINS) (UNKNOWN) [Concomitant]

REACTIONS (8)
  - Temperature intolerance [None]
  - Photosensitivity reaction [None]
  - Pruritus [None]
  - Urticaria [None]
  - Rash [None]
  - Nasopharyngitis [None]
  - Oropharyngeal pain [None]
  - Disease progression [None]
